FAERS Safety Report 16708815 (Version 1)
Quarter: 2019Q3

REPORT INFORMATION
  Report Type: Spontaneous
  Country: IT (occurrence: IT)
  Receive Date: 20190816
  Receipt Date: 20190816
  Transmission Date: 20191004
  Serious: Yes (Life-Threatening)
  Sender: FDA-Public Use
  Company Number: IT-SUN PHARMACEUTICAL INDUSTRIES LTD-2019RR-217781

PATIENT
  Age: 68 Year
  Sex: Female
  Weight: 70 kg

DRUGS (1)
  1. OXALIPLATIN. [Suspect]
     Active Substance: OXALIPLATIN
     Indication: COLON CANCER
     Dosage: IN TOTAL
     Route: 042
     Dates: start: 20190722, end: 20190722

REACTIONS (2)
  - Laryngeal oedema [Recovered/Resolved]
  - Respiratory fatigue [Recovered/Resolved]

NARRATIVE: CASE EVENT DATE: 20190722
